FAERS Safety Report 8216749-9 (Version None)
Quarter: 2012Q1

REPORT INFORMATION
  Report Type: 
  Country: None (occurrence: None)
  Receive Date: 20120316
  Receipt Date: 20120306
  Transmission Date: 20120608
  Serious: Yes (Hospitalization, Other)
  Sender: FDA-Public Use
  Company Number: JP-ROCHE-762534

PATIENT
  Sex: Female
  Weight: 56 kg

DRUGS (18)
  1. ACTEMRA [Suspect]
     Indication: RHEUMATOID ARTHRITIS
     Route: 041
     Dates: start: 20110114, end: 20110114
  2. VANCOMYCIN [Suspect]
     Indication: SPUTUM CULTURE POSITIVE
     Route: 041
     Dates: start: 20110216, end: 20110226
  3. PREDNISOLONE [Concomitant]
     Dosage: 5 AND 5MG IN DAYTIME IN MORNING
     Route: 048
  4. ASPIRIN [Concomitant]
     Route: 048
  5. ERYTHROCIN LACTOBIONATE [Concomitant]
     Route: 048
  6. LASIX [Concomitant]
     Route: 048
     Dates: start: 20110128, end: 20110203
  7. MEDROL [Concomitant]
     Dosage: 16 AND 8MG IN DAYTIME IN MORNING
     Route: 048
     Dates: start: 20110111, end: 20110121
  8. ALLOPURINOL [Concomitant]
     Route: 048
     Dates: start: 20110125, end: 20110203
  9. ACTEMRA [Suspect]
     Route: 041
     Dates: start: 20110207, end: 20110207
  10. CELECOXIB [Concomitant]
     Route: 048
     Dates: start: 20110121, end: 20110127
  11. LASIX [Concomitant]
     Route: 048
     Dates: start: 20110115, end: 20110127
  12. LASIX [Concomitant]
     Route: 048
     Dates: start: 20110204, end: 20110210
  13. PREDNISOLONE [Concomitant]
     Dosage: 7.5 AND 5MG IN DAYTIME IN MORNING
     Route: 048
     Dates: start: 20110204, end: 20110317
  14. MEDROL [Concomitant]
     Dosage: 8 AND 4 MG IN DAYTIME IN MORNING
     Route: 048
     Dates: start: 20110129, end: 20110203
  15. ZYVOX [Concomitant]
     Route: 048
     Dates: start: 20110105, end: 20110118
  16. MEDROL [Concomitant]
     Dosage: 8 AND 6MG IN DAYTIME IN MORNING
     Route: 048
     Dates: start: 20110122, end: 20110128
  17. LANSOPRAZOLE [Concomitant]
     Route: 048
     Dates: start: 20110103, end: 20110217
  18. ALLOPURINOL [Concomitant]
     Route: 048
     Dates: start: 20110204, end: 20110217

REACTIONS (6)
  - HYPERURICAEMIA [None]
  - PLATELET COUNT DECREASED [None]
  - OEDEMA [None]
  - HISTIOCYTOSIS HAEMATOPHAGIC [None]
  - BLOOD FIBRINOGEN DECREASED [None]
  - STAPHYLOCOCCAL INFECTION [None]
